FAERS Safety Report 8080656-5 (Version None)
Quarter: 2012Q1

REPORT INFORMATION
  Report Type: 
  Country: None (occurrence: None)
  Receive Date: 20120130
  Receipt Date: 20120119
  Transmission Date: 20120608
  Serious: Yes (Hospitalization, Other)
  Sender: FDA-Public Use
  Company Number: PHHY2011US65190

PATIENT
  Sex: Female
  Weight: 48.8 kg

DRUGS (1)
  1. AFINITOR [Suspect]
     Indication: RENAL CELL CARCINOMA
     Dosage: 10 MG, QD
     Route: 048
     Dates: start: 20100129

REACTIONS (3)
  - ABDOMINAL PAIN UPPER [None]
  - SMALL INTESTINAL OBSTRUCTION [None]
  - BOWEL MOVEMENT IRREGULARITY [None]
